FAERS Safety Report 14233118 (Version 2)
Quarter: 2018Q1

REPORT INFORMATION
  Report Type: Report from Study
  Country: US (occurrence: US)
  Receive Date: 20171129
  Receipt Date: 20180131
  Transmission Date: 20180508
  Serious: Yes (Hospitalization)
  Sender: FDA-Public Use
  Company Number: US-ACTELION-A-US2017-160614

PATIENT
  Age: 29 Year
  Sex: Female
  Weight: 112.93 kg

DRUGS (3)
  1. REVATIO [Concomitant]
     Active Substance: SILDENAFIL CITRATE
  2. VELETRI [Suspect]
     Active Substance: EPOPROSTENOL
     Indication: PULMONARY ARTERIAL HYPERTENSION
     Dosage: 8 NG/KG, PER MIN
     Route: 042
  3. AMLODIPINE [Concomitant]
     Active Substance: AMLODIPINE BESYLATE

REACTIONS (20)
  - Catheter site pruritus [Unknown]
  - Catheter site exfoliation [Unknown]
  - Functional gastrointestinal disorder [Unknown]
  - Myalgia [Recovering/Resolving]
  - Nausea [Recovered/Resolved]
  - Diarrhoea [Unknown]
  - Pain [Unknown]
  - Pain in extremity [Unknown]
  - Dermatitis [Unknown]
  - Catheter site discharge [Unknown]
  - Rash [Recovering/Resolving]
  - Pain in jaw [Unknown]
  - Weight decreased [Unknown]
  - Hypersensitivity [Unknown]
  - Catheter site infection [Unknown]
  - Migraine [Recovering/Resolving]
  - Vomiting [Unknown]
  - Decreased appetite [Recovering/Resolving]
  - Arthralgia [Recovered/Resolved]
  - Catheter management [Unknown]

NARRATIVE: CASE EVENT DATE: 201710
